FAERS Safety Report 5416514-1 (Version None)
Quarter: 2007Q3

REPORT INFORMATION
  Report Type: 
  Country: None (occurrence: None)
  Receive Date: 20070814
  Receipt Date: 20070810
  Transmission Date: 20080115
  Serious: Yes (Hospitalization)
  Sender: FDA-Public Use
  Company Number: GRT 2007-11880

PATIENT
  Age: 86 Year
  Sex: Female
  Weight: 67.9 kg

DRUGS (3)
  1. LIDOCAINE [Suspect]
     Indication: POST HERPETIC NEURALGIA
     Dosage: 3 PATCHES A DAY
     Dates: start: 20040120
  2. PANTOPRAZOLE SODIUM [Concomitant]
  3. MULTI-TABS (ASCORBIC ACID, CALCIUM, PANTOTHENATE, COBALTOUS SULFATE, C [Concomitant]

REACTIONS (2)
  - INFECTION [None]
  - LARYNGITIS [None]
